FAERS Safety Report 18227618 (Version 1)
Quarter: 2020Q3

REPORT INFORMATION
  Report Type: Spontaneous
  Country: CN (occurrence: CN)
  Receive Date: 20200903
  Receipt Date: 20200903
  Transmission Date: 20201103
  Serious: Yes (Other)
  Sender: FDA-Public Use
  Company Number: CN-JNJFOC-20200845006

PATIENT
  Age: 36 Year
  Sex: Male
  Weight: 70 kg

DRUGS (1)
  1. TRAMADOL HYDROCHLORIDE. [Suspect]
     Active Substance: TRAMADOL HYDROCHLORIDE
     Indication: PAIN
     Dosage: 100 MILLIGRAM, 2/DAY
     Route: 048
     Dates: start: 20200703, end: 20200806

REACTIONS (2)
  - Hyponatraemia [Recovering/Resolving]
  - Antidiuretic hormone abnormality [Recovering/Resolving]

NARRATIVE: CASE EVENT DATE: 20200804
